FAERS Safety Report 7419264-5 (Version None)
Quarter: 2011Q2

REPORT INFORMATION
  Report Type: 
  Country: None (occurrence: None)
  Receive Date: 20110415
  Receipt Date: 20110406
  Transmission Date: 20111010
  Serious: Yes (Hospitalization)
  Sender: FDA-Public Use
  Company Number: US-ASTRAZENECA-2011SE19772

PATIENT
  Age: 55 Year
  Sex: Male

DRUGS (3)
  1. CELEBREX [Concomitant]
  2. NEXIUM [Suspect]
     Route: 048
  3. CYMBALTA [Concomitant]

REACTIONS (1)
  - ILL-DEFINED DISORDER [None]
